FAERS Safety Report 21447151 (Version 1)
Quarter: 2022Q4

REPORT INFORMATION
  Report Type: Report from Study
  Country: JP (occurrence: JP)
  Receive Date: 20221012
  Receipt Date: 20221012
  Transmission Date: 20230112
  Serious: Yes (Hospitalization)
  Sender: FDA-Public Use
  Company Number: JP-Merck Healthcare KGaA-9243510

PATIENT
  Age: 57 Year
  Sex: Male
  Weight: 72 kg

DRUGS (8)
  1. BAVENCIO [Suspect]
     Active Substance: AVELUMAB
     Indication: Metastatic renal cell carcinoma
     Route: 041
     Dates: start: 20201224, end: 20210513
  2. INLYTA [Suspect]
     Active Substance: AXITINIB
     Indication: Metastatic renal cell carcinoma
     Dates: start: 20201224, end: 20210120
  3. INLYTA [Suspect]
     Active Substance: AXITINIB
     Dates: start: 20210121, end: 20210401
  4. INLYTA [Suspect]
     Active Substance: AXITINIB
     Dates: start: 20210402, end: 20210513
  5. ACETAMINOPHEN [Concomitant]
     Active Substance: ACETAMINOPHEN
     Indication: Premedication
     Route: 041
     Dates: start: 20201224
  6. CHLORPHENIRAMINE MALEATE [Concomitant]
     Active Substance: CHLORPHENIRAMINE MALEATE
     Indication: Premedication
     Route: 041
     Dates: start: 20201224, end: 20201224
  7. CHLORPHENIRAMINE MALEATE [Concomitant]
     Active Substance: CHLORPHENIRAMINE MALEATE
     Route: 041
     Dates: start: 20210107, end: 20210401
  8. DIPHENHYDRAMINE [Concomitant]
     Active Substance: DIPHENHYDRAMINE
     Indication: Premedication
     Route: 041
     Dates: start: 20210421

REACTIONS (3)
  - Interstitial lung disease [Recovering/Resolving]
  - Adverse event [Unknown]
  - Disease progression [Unknown]

NARRATIVE: CASE EVENT DATE: 20210520
